FAERS Safety Report 11539512 (Version 1)
Quarter: 2015Q3

REPORT INFORMATION
  Report Type: Spontaneous
  Country: GB (occurrence: GB)
  Receive Date: 20150923
  Receipt Date: 20150923
  Transmission Date: 20151125
  Serious: Yes (Hospitalization)
  Sender: FDA-Public Use
  Company Number: GB-ACTAVIS-2015-20154

PATIENT
  Age: 21 Year
  Sex: Male
  Weight: 74 kg

DRUGS (3)
  1. IBUPROFEN (UNKNOWN) [Suspect]
     Active Substance: IBUPROFEN
     Indication: PRODUCT USED FOR UNKNOWN INDICATION
     Dosage: UNK
     Route: 065
     Dates: start: 20150902
  2. PARACETAMOL [Concomitant]
     Active Substance: ACETAMINOPHEN
     Indication: PRODUCT USED FOR UNKNOWN INDICATION
     Dosage: UNK UNK, Q1H; TAKE 1 OR 2
     Route: 065
     Dates: start: 20150707, end: 20150708
  3. LOPERAMIDE [Concomitant]
     Active Substance: LOPERAMIDE
     Indication: PRODUCT USED FOR UNKNOWN INDICATION
     Dosage: UNK; USE AS DIRECTED
     Route: 065
     Dates: start: 20150813, end: 20150814

REACTIONS (1)
  - Anaphylactic reaction [Recovered/Resolved]
